FAERS Safety Report 10665794 (Version 1)
Quarter: 2014Q4

REPORT INFORMATION
  Report Type: Report from Study
  Country: US (occurrence: US)
  Receive Date: 20141219
  Receipt Date: 20141219
  Transmission Date: 20150529
  Serious: Yes (Other)
  Sender: FDA-Public Use
  Company Number: US-PURDUE-USA-2014-0119812

PATIENT
  Sex: Female

DRUGS (2)
  1. OXYCONTIN [Suspect]
     Active Substance: OXYCODONE HYDROCHLORIDE
     Indication: PRODUCT USED FOR UNKNOWN INDICATION
     Dosage: 20 MG, Q8H
     Route: 048
     Dates: start: 2013
  2. OXYCODONE HCL IR CAPSULES [Suspect]
     Active Substance: OXYCODONE HYDROCHLORIDE
     Indication: BREAKTHROUGH PAIN
     Dosage: 10 MG, PRN
     Route: 048
     Dates: start: 2013

REACTIONS (9)
  - Dizziness [Unknown]
  - Palpitations [Unknown]
  - Asthenia [Unknown]
  - Inadequate analgesia [Unknown]
  - Lethargy [Unknown]
  - Headache [Unknown]
  - Abdominal discomfort [Unknown]
  - Vision blurred [Unknown]
  - Blood pressure increased [Unknown]
